FAERS Safety Report 5082053-3 (Version None)
Quarter: 2006Q3

REPORT INFORMATION
  Report Type: 
  Country: None (occurrence: None)
  Receive Date: 20060811
  Receipt Date: 20060731
  Transmission Date: 20061208
  Serious: Yes (Other)
  Sender: FDA-Public Use
  Company Number: 2006053929

PATIENT
  Sex: Female

DRUGS (5)
  1. XALATAN [Suspect]
     Indication: DRUG USE FOR UNKNOWN INDICATION
     Dates: start: 20000101, end: 20040101
  2. XALACOM (LATANOPROST, TIMOLOL) [Suspect]
     Indication: DRUG USE FOR UNKNOWN INDICATION
     Dates: start: 20040701
  3. MINOXIDIL [Concomitant]
  4. CARTEOLOL HCL [Concomitant]
  5. BRINZOLAMIDE [Concomitant]

REACTIONS (5)
  - AMBLYOPIA [None]
  - BILIARY CYST [None]
  - HEPATIC CYST [None]
  - RETINOSCHISIS [None]
  - STRABISMUS [None]
